FAERS Safety Report 18233544 (Version 1)
Quarter: 2020Q3

REPORT INFORMATION
  Report Type: Spontaneous
  Country: US (occurrence: US)
  Receive Date: 20200904
  Receipt Date: 20200904
  Transmission Date: 20201103
  Serious: No
  Sender: FDA-Public Use
  Company Number: US-HORIZON-TEP-1717-2020

PATIENT
  Sex: Female

DRUGS (1)
  1. TEPEZZA [Suspect]
     Active Substance: TEPROTUMUMAB-TRBW
     Indication: PRODUCT USED FOR UNKNOWN INDICATION

REACTIONS (8)
  - Abdominal pain upper [Unknown]
  - Headache [Unknown]
  - Hyperhidrosis [Unknown]
  - Thyroid disorder [Unknown]
  - Fibromyalgia [Unknown]
  - Feeling hot [Unknown]
  - Dyspnoea [Unknown]
  - Macular degeneration [Unknown]
